FAERS Safety Report 14968081 (Version 2)
Quarter: 2018Q2

REPORT INFORMATION
  Report Type: Spontaneous
  Country: US (occurrence: US)
  Receive Date: 20180604
  Receipt Date: 20180620
  Transmission Date: 20180711
  Serious: No
  Sender: FDA-Public Use
  Company Number: US-TEVA-2018-US-901279

PATIENT
  Sex: Female

DRUGS (1)
  1. ADIPEX-P [Suspect]
     Active Substance: PHENTERMINE HYDROCHLORIDE
     Indication: WEIGHT DECREASED
     Dates: start: 2007

REACTIONS (3)
  - Fatigue [Unknown]
  - Hunger [Unknown]
  - Drug ineffective [Unknown]
